FAERS Safety Report 9106352 (Version 1)
Quarter: 2013Q1

REPORT INFORMATION
  Report Type: Spontaneous
  Country: MX (occurrence: MX)
  Receive Date: 20130221
  Receipt Date: 20130221
  Transmission Date: 20140127
  Serious: Yes (Death, Other)
  Sender: FDA-Public Use
  Company Number: PHHY2013MX016859

PATIENT
  Age: 69 Year
  Sex: Male

DRUGS (4)
  1. EXELON PATCH [Suspect]
     Indication: DEMENTIA ALZHEIMER^S TYPE
     Dosage: 9.5 MG, DAILY
     Route: 062
     Dates: start: 2012
  2. LOSARTAN [Concomitant]
     Dosage: 1 DF, DAILY
  3. GLIBENCLAMIDE [Concomitant]
     Dosage: 1 DF, DAILY
  4. INSULIN [Concomitant]
     Dosage: 1 DF, DAILY

REACTIONS (3)
  - Respiratory arrest [Fatal]
  - Respiratory failure [Fatal]
  - Blood glucose decreased [Unknown]
